FAERS Safety Report 16608696 (Version 2)
Quarter: 2019Q3

REPORT INFORMATION
  Report Type: Spontaneous
  Country: JP (occurrence: JP)
  Receive Date: 20190722
  Receipt Date: 20190802
  Transmission Date: 20191004
  Serious: Yes (Hospitalization, Other)
  Sender: FDA-Public Use
  Company Number: JP-TEVA-2019-JP-1080059

PATIENT
  Age: 63 Year
  Sex: Female
  Weight: 69.8 kg

DRUGS (9)
  1. G-LASTA [Suspect]
     Active Substance: PEGFILGRASTIM
     Indication: ADJUVANT THERAPY
     Dosage: G-LASTA KIT
     Route: 065
     Dates: start: 20180307
  2. IRINOTECAN HYDROCHLORIDE. [Suspect]
     Active Substance: IRINOTECAN HYDROCHLORIDE
     Indication: SMALL CELL LUNG CANCER EXTENSIVE STAGE
     Route: 065
     Dates: start: 20170606
  3. G-LASTA [Suspect]
     Active Substance: PEGFILGRASTIM
     Route: 065
     Dates: start: 20180926
  4. ETOPOSIDE. [Suspect]
     Active Substance: ETOPOSIDE
     Indication: SMALL CELL LUNG CANCER EXTENSIVE STAGE
     Route: 065
     Dates: start: 20180926
  5. FILGRASTIM [Suspect]
     Active Substance: FILGRASTIM
     Indication: ADJUVANT THERAPY
     Dosage: 75 MILLIGRAM DAILY; 75MCG SYRINGE??FILGRASTIM BS INJ. 75MCG SYRINGE
     Route: 065
  6. CISPLATIN INJECTION [Suspect]
     Active Substance: CISPLATIN
     Indication: SMALL CELL LUNG CANCER EXTENSIVE STAGE
     Route: 065
     Dates: start: 20170606
  7. CALSED [Suspect]
     Active Substance: AMRUBICIN HYDROCHLORIDE
     Route: 065
     Dates: start: 20190507
  8. CARBOPLATIN. [Suspect]
     Active Substance: CARBOPLATIN
     Indication: SMALL CELL LUNG CANCER EXTENSIVE STAGE
     Route: 065
     Dates: start: 20180926
  9. CALSED [Suspect]
     Active Substance: AMRUBICIN HYDROCHLORIDE
     Indication: SMALL CELL LUNG CANCER EXTENSIVE STAGE
     Route: 065
     Dates: start: 20180307

REACTIONS (4)
  - Myelodysplastic syndrome [Not Recovered/Not Resolved]
  - White blood cell count decreased [Recovered/Resolved]
  - Neutrophil count decreased [Recovered/Resolved]
  - Pneumonia [Recovered/Resolved]

NARRATIVE: CASE EVENT DATE: 20180319
